FAERS Safety Report 9837843 (Version 1)
Quarter: 2014Q1

REPORT INFORMATION
  Report Type: Spontaneous
  Country: US (occurrence: None)
  Receive Date: 20140117
  Receipt Date: 20140117
  Transmission Date: 20141002
  Serious: Yes (Life-Threatening)
  Sender: FDA-Public Use
  Company Number: None

PATIENT
  Age: 15 Year
  Sex: Female
  Weight: 86.64 kg

DRUGS (2)
  1. REMICADE [Suspect]
     Indication: JUVENILE IDIOPATHIC ARTHRITIS
     Dosage: 260MG  LOADING DOSE  INTRAVENOUS
     Route: 042
     Dates: start: 20140116, end: 20140116
  2. NORMAL SALINE [Suspect]
     Indication: DRUG THERAPY
     Dosage: 250ML LOADING DOSE INTRAVENOUS
     Route: 042
     Dates: start: 20140116, end: 20140116

REACTIONS (6)
  - Pruritus [None]
  - Erythema [None]
  - Vomiting [None]
  - Lacrimation increased [None]
  - Dyspnoea [None]
  - Throat tightness [None]
